FAERS Safety Report 6798933-4 (Version None)
Quarter: 2010Q2

REPORT INFORMATION
  Report Type: 
  Country: None (occurrence: None)
  Receive Date: 20100616
  Receipt Date: 20090915
  Transmission Date: 20101027
  Serious: Yes (Hospitalization, Other)
  Sender: FDA-Public Use
  Company Number: 2009SP025227

PATIENT
  Age: 19 Year
  Sex: Female
  Weight: 77.1115 kg

DRUGS (1)
  1. NUVARING [Suspect]
     Indication: DRUG USE FOR UNKNOWN INDICATION
     Dates: start: 20070701, end: 20070917

REACTIONS (2)
  - OVARIAN CYST [None]
  - PULMONARY EMBOLISM [None]
